FAERS Safety Report 11185987 (Version 1)
Quarter: 2015Q2

REPORT INFORMATION
  Report Type: Spontaneous
  Country: FR (occurrence: FR)
  Receive Date: 20150612
  Receipt Date: 20150612
  Transmission Date: 20150821
  Serious: Yes (Death)
  Sender: FDA-Public Use
  Company Number: FR-ASTRAZENECA-2015SE56848

PATIENT
  Age: 52 Year
  Sex: Female

DRUGS (13)
  1. XEROQUEL [Suspect]
     Active Substance: QUETIAPINE FUMARATE
     Dosage: ONCE/SINGLE ADMINISTRATION
     Route: 048
     Dates: start: 201505
  2. PROTHIADEN [Suspect]
     Active Substance: DOTHIEPIN HYDROCHLORIDE
     Dosage: ONCE/SINGLE ADMINISTRATION
     Route: 048
     Dates: start: 201505
  3. CITALOPRAM [Suspect]
     Active Substance: CITALOPRAM HYDROBROMIDE
     Dosage: ONCE/SINGLE ADMINISTRATION
     Route: 048
     Dates: start: 201505
  4. SERTRALINE [Suspect]
     Active Substance: SERTRALINE HYDROCHLORIDE
     Dosage: ONCE/SINGLE ADMINISTRATION
     Route: 048
     Dates: start: 201505
  5. TERALITHE [Suspect]
     Active Substance: LITHIUM CARBONATE
     Dosage: ONCE/SINGLE ADMINISTRATION
     Route: 048
     Dates: start: 201505
  6. TERCIAN [Suspect]
     Active Substance: CYAMEMAZINE
     Dosage: ONCE/SINGLE ADMINISTRATION
     Route: 048
     Dates: start: 201505
  7. THERALENE [Suspect]
     Active Substance: TRIMEPRAZINE
     Dosage: ONCE/SINGLE ADMINISTRATION
     Route: 048
     Dates: start: 201505
  8. CLOMIPRAMINE CHLORHYDRATE [Suspect]
     Active Substance: CLOMIPRAMINE HYDROCHLORIDE
     Dosage: ONCE/SINGLE ADMINISTRATION
     Route: 048
     Dates: start: 201505
  9. SERESTA [Suspect]
     Active Substance: OXAZEPAM
     Dosage: ONCE/SINGLE ADMINISTRATION
     Route: 048
     Dates: start: 201505
  10. URBANYL [Suspect]
     Active Substance: CLOBAZAM
     Dosage: ONCE/SINGLE ADMINISTRATION
     Route: 048
     Dates: start: 201505
  11. ZOPICLONE [Suspect]
     Active Substance: ZOPICLONE
     Dosage: ONCE/SINGLE ADMINISTRATION
     Route: 048
     Dates: start: 201505
  12. NOZINAN [Suspect]
     Active Substance: LEVOMEPROMAZINE
     Dosage: ONCE/SINGLE ADMINISTRATION
     Route: 048
     Dates: start: 201505
  13. ZOLPIDEM [Suspect]
     Active Substance: ZOLPIDEM\ZOLPIDEM TARTRATE
     Dosage: ONCE/SINGLE ADMINISTRATION
     Route: 048
     Dates: start: 201505

REACTIONS (5)
  - Asphyxia [Fatal]
  - Coma [Fatal]
  - Cardio-respiratory arrest [Fatal]
  - Poisoning deliberate [Fatal]
  - Hypoxia [Fatal]

NARRATIVE: CASE EVENT DATE: 201505
